FAERS Safety Report 19653760 (Version 1)
Quarter: 2021Q3

REPORT INFORMATION
  Report Type: Report from Study
  Country: US (occurrence: US)
  Receive Date: 20210804
  Receipt Date: 20210804
  Transmission Date: 20211014
  Serious: Yes (Other)
  Sender: FDA-Public Use
  Company Number: US-SA-2021SA066833

PATIENT
  Age: 63 Year
  Sex: Female

DRUGS (2)
  1. SARILUMAB [Suspect]
     Active Substance: SARILUMAB
     Dosage: 200 MG, QOW
     Route: 058
     Dates: start: 20210223
  2. SARILUMAB [Suspect]
     Active Substance: SARILUMAB
     Indication: RHEUMATOID ARTHRITIS
     Dosage: UNK UNK, QOW
     Route: 058
     Dates: start: 20190329

REACTIONS (8)
  - Rheumatoid arthritis [Unknown]
  - Joint swelling [Unknown]
  - Headache [Recovered/Resolved]
  - Sinus congestion [Recovered/Resolved]
  - Illness [Recovered/Resolved]
  - Arthralgia [Unknown]
  - Condition aggravated [Unknown]
  - Expired product administered [Unknown]

NARRATIVE: CASE EVENT DATE: 20210222
